FAERS Safety Report 21363564 (Version 2)
Quarter: 2023Q4

REPORT INFORMATION
  Report Type: Spontaneous
  Country: CH (occurrence: CH)
  Receive Date: 20220922
  Receipt Date: 20231006
  Transmission Date: 20240110
  Serious: Yes (Hospitalization)
  Sender: FDA-Public Use
  Company Number: CH-BAYER-2022A131070

PATIENT
  Age: 52 Year
  Sex: Female

DRUGS (1)
  1. ULTRAVIST [Suspect]
     Active Substance: IOPROMIDE
     Dosage: 1 DF, ONCE
     Dates: start: 20220914, end: 20220914

REACTIONS (3)
  - Dyspnoea [None]
  - Bronchial obstruction [None]
  - Bronchospasm [None]

NARRATIVE: CASE EVENT DATE: 20220914
